FAERS Safety Report 5910007-0 (Version None)
Quarter: 2008Q4

REPORT INFORMATION
  Report Type: 
  Country: None (occurrence: None)
  Receive Date: 20081007
  Receipt Date: 20080925
  Transmission Date: 20090506
  Serious: Yes (Hospitalization)
  Sender: FDA-Public Use
  Company Number: JP-AMGEN-US306001

PATIENT
  Sex: Female
  Weight: 50 kg

DRUGS (12)
  1. ENBREL [Suspect]
     Indication: RHEUMATOID ARTHRITIS
     Dosage: LYOPHILIZED: 25 MG TWICE WEEKLY
     Route: 058
     Dates: start: 20061001
  2. BREDININ [Concomitant]
     Indication: RHEUMATOID ARTHRITIS
     Route: 048
  3. LOXONIN [Concomitant]
     Indication: RHEUMATOID ARTHRITIS
     Route: 048
  4. CYTOTEC [Concomitant]
     Indication: GASTRITIS
     Route: 048
  5. INSULIN HUMAN [Concomitant]
     Indication: DIABETES MELLITUS
     Dosage: UNSPECIFIED: HUMACART 3/7 AND HUMACORT R
     Route: 058
  6. NORVASC [Concomitant]
     Indication: HYPERTENSION
     Route: 048
  7. PREDNISOLONE [Concomitant]
     Indication: RHEUMATOID ARTHRITIS
     Route: 048
  8. HOKUNALIN [Concomitant]
     Indication: CHRONIC RESPIRATORY FAILURE
     Route: 061
  9. HALCION [Concomitant]
     Indication: INSOMNIA
     Route: 048
  10. ANAFRANIL [Concomitant]
     Indication: INSOMNIA
     Route: 048
  11. PREDONINE [Concomitant]
     Indication: RHEUMATOID ARTHRITIS
     Route: 048
  12. ALLEGRA [Concomitant]
     Indication: DERMATITIS ALLERGIC
     Route: 048

REACTIONS (6)
  - CONTUSION [None]
  - NASOPHARYNGITIS [None]
  - PNEUMONIA [None]
  - RESPIRATORY FAILURE [None]
  - ROAD TRAFFIC ACCIDENT [None]
  - SOMNOLENCE [None]
